FAERS Safety Report 12571274 (Version 1)
Quarter: 2016Q3

REPORT INFORMATION
  Report Type: Spontaneous
  Country: US (occurrence: US)
  Receive Date: 20160719
  Receipt Date: 20160719
  Transmission Date: 20161109
  Serious: No
  Sender: FDA-Public Use
  Company Number: GXBR2016US001921

PATIENT
  Sex: Female
  Weight: 76.19 kg

DRUGS (8)
  1. ATENOLOL TABLETS USP [Suspect]
     Active Substance: ATENOLOL
     Indication: MYOCARDIAL INFARCTION
  2. POTASSIUM CHLORIDE. [Concomitant]
     Active Substance: POTASSIUM CHLORIDE
     Indication: HYPOKALAEMIA
     Dosage: UNK DF, UNK
     Route: 065
  3. DILTIAZEM. [Concomitant]
     Active Substance: DILTIAZEM
     Indication: HYPERTENSION
     Dosage: UNK DF, UNK
     Route: 065
  4. DILTIAZEM. [Concomitant]
     Active Substance: DILTIAZEM
     Indication: MYOCARDIAL INFARCTION
  5. FUROSEMIDE. [Concomitant]
     Active Substance: FUROSEMIDE
     Indication: DIURETIC THERAPY
     Dosage: UNK DF, UNK
     Route: 065
  6. ATENOLOL TABLETS USP [Suspect]
     Active Substance: ATENOLOL
     Indication: HYPERTENSION
     Dosage: 50 MG, QD
     Route: 048
     Dates: start: 201605
  7. ISOSORBIDE MONONITRATE. [Concomitant]
     Active Substance: ISOSORBIDE MONONITRATE
     Indication: ANGINA PECTORIS
     Dosage: UNK DF, UNK
     Route: 065
  8. ATORVASTATIN [Concomitant]
     Active Substance: ATORVASTATIN
     Indication: BLOOD CHOLESTEROL INCREASED
     Dosage: UNK DF, UNK
     Route: 065

REACTIONS (8)
  - Dyspnoea [Recovered/Resolved]
  - Head discomfort [Recovered/Resolved]
  - Ear congestion [Recovered/Resolved]
  - Asthenia [Recovered/Resolved]
  - Hypoacusis [Recovered/Resolved]
  - Dizziness [Recovered/Resolved]
  - Paraesthesia oral [Recovered/Resolved]
  - Abdominal discomfort [Recovered/Resolved]
